FAERS Safety Report 14852730 (Version 3)
Quarter: 2020Q1

REPORT INFORMATION
  Report Type: Spontaneous
  Country: DE (occurrence: DE)
  Receive Date: 20180507
  Receipt Date: 20200302
  Transmission Date: 20200409
  Serious: Yes (Other)
  Sender: FDA-Public Use
  Company Number: DE-AUROBINDO-AUR-APL-2018-024561

PATIENT
  Age: 8 Year
  Sex: Male
  Weight: 26 kg

DRUGS (9)
  1. LAMOTRIGIN HEXAL [Suspect]
     Active Substance: LAMOTRIGINE
     Indication: PARTIAL SEIZURES
     Dosage: 50 MILLIGRAM, ONCE A DAY
     Route: 048
     Dates: start: 2018
  2. OMEGA-3 FATTY ACIDS [Concomitant]
     Active Substance: OMEGA-3 FATTY ACIDS
     Indication: PRODUCT USED FOR UNKNOWN INDICATION
     Dosage: ()
     Route: 065
  3. LAMOTRIGINE. [Suspect]
     Active Substance: LAMOTRIGINE
     Indication: PARTIAL SEIZURES
     Dosage: 200 MILLIGRAM, ONCE A DAY
     Route: 065
  4. LAMOTRIGIN HEXAL [Suspect]
     Active Substance: LAMOTRIGINE
     Indication: EPILEPSY
     Dosage: 50 MILLIGRAM, ONCE A DAY
     Route: 065
  5. LAMOTRIGIN HEXAL [Suspect]
     Active Substance: LAMOTRIGINE
     Dosage: 150 MILLIGRAM, UNK IN MORNING
     Route: 065
  6. LAMOTRIGIN HEXAL [Suspect]
     Active Substance: LAMOTRIGINE
     Indication: EPILEPSY
     Dosage: 100 MILLIGRAM, ONCE A DAY
     Route: 048
     Dates: start: 2018
  7. LAMOTRIGIN HEXAL [Suspect]
     Active Substance: LAMOTRIGINE
     Dosage: 100 MILLIGRAM, TWO TIMES A DAY
     Route: 065
     Dates: start: 201801
  8. LAMOTRIGIN HEXAL [Suspect]
     Active Substance: LAMOTRIGINE
     Dosage: 100 MILLIGRAM, ONCE A DAY
     Route: 065
  9. LAMOTRIGIN HEXAL [Suspect]
     Active Substance: LAMOTRIGINE
     Indication: PARTIAL SEIZURES
     Dosage: 150 MILLIGRAM, ONCE A DAY (MORNING)
     Route: 048
     Dates: start: 2018

REACTIONS (6)
  - Rhinorrhoea [Unknown]
  - Drug level decreased [Unknown]
  - Eosinophil count increased [Unknown]
  - Throat clearing [Unknown]
  - Blood immunoglobulin E increased [Unknown]
  - Epilepsy [Unknown]

NARRATIVE: CASE EVENT DATE: 201701
